FAERS Safety Report 18999832 (Version 2)
Quarter: 2021Q1

REPORT INFORMATION
  Report Type: Spontaneous
  Country: ES (occurrence: ES)
  Receive Date: 20210311
  Receipt Date: 20210314
  Transmission Date: 20210420
  Serious: Yes (Hospitalization)
  Sender: FDA-Public Use
  Company Number: ES-JNJFOC-20210318113

PATIENT
  Age: 84 Year
  Sex: Female

DRUGS (5)
  1. DUROGESIC MATRIX [Suspect]
     Active Substance: FENTANYL
     Dosage: STRENGTH: 100 UG/HR
     Route: 062
     Dates: start: 20200104, end: 20201010
  2. DUROGESIC MATRIX [Suspect]
     Active Substance: FENTANYL
     Indication: VASCULAR PAIN
     Dosage: 3 PATCHES/72 H?STRENGTH: 100 UG/HR
     Route: 062
     Dates: start: 20201011, end: 20201214
  3. DUROGESIC MATRIX [Suspect]
     Active Substance: FENTANYL
     Dosage: 1 PATCH/72H
     Route: 062
     Dates: start: 20190417, end: 20200103
  4. ABSTRAL [Suspect]
     Active Substance: FENTANYL CITRATE
     Dosage: PRIOR TO THE HEALINGS; AS REQUIRED
     Route: 060
     Dates: start: 20200128, end: 20201117
  5. ABSTRAL [Suspect]
     Active Substance: FENTANYL CITRATE
     Indication: PROCEDURAL PAIN
     Dosage: PRIOR TO THE HEALINGS THAT TAKE PLACE EVERY 48 HOURS
     Route: 060
     Dates: start: 20201117, end: 20201214

REACTIONS (2)
  - Hip fracture [Recovered/Resolved with Sequelae]
  - Fall [Recovered/Resolved with Sequelae]

NARRATIVE: CASE EVENT DATE: 20201211
